FAERS Safety Report 7191651-2 (Version None)
Quarter: 2010Q4

REPORT INFORMATION
  Report Type: 
  Country: None (occurrence: None)
  Receive Date: 20101223
  Receipt Date: 20101219
  Transmission Date: 20110411
  Serious: Yes (Other)
  Sender: FDA-Public Use
  Company Number: US-JNJCH-2010029222

PATIENT
  Sex: Female

DRUGS (1)
  1. ZYRTEC-D 12 HOUR [Suspect]
     Indication: HYPERSENSITIVITY
     Dosage: TEXT:UNSPECIFIED
     Route: 048

REACTIONS (1)
  - WITHDRAWAL SYNDROME [None]
